FAERS Safety Report 16420983 (Version 1)
Quarter: 2019Q3

REPORT INFORMATION
  Report Type: Spontaneous
  Country: US (occurrence: US)
  Receive Date: 20190611
  Receipt Date: 20190611
  Transmission Date: 20191004
  Serious: No
  Sender: FDA-Public Use
  Company Number: None

PATIENT
  Age: 89 Year
  Sex: Male
  Weight: 49 kg

DRUGS (2)
  1. DAPTOMYCIN. [Suspect]
     Active Substance: DAPTOMYCIN
     Indication: ENDOCARDITIS
     Dosage: ?          OTHER FREQUENCY:EVERY OTHER DAY;?
     Route: 040
     Dates: start: 20190527, end: 20190607
  2. ATORVASTATIN [Suspect]
     Active Substance: ATORVASTATIN
     Route: 048
     Dates: start: 20190601, end: 20190608

REACTIONS (3)
  - Rhabdomyolysis [None]
  - Urinary tract infection [None]
  - Asthenia [None]

NARRATIVE: CASE EVENT DATE: 20190610
